FAERS Safety Report 20601143 (Version 2)
Quarter: 2022Q3

REPORT INFORMATION
  Report Type: Spontaneous
  Country: IL (occurrence: IL)
  Receive Date: 20220316
  Receipt Date: 20220715
  Transmission Date: 20221026
  Serious: Yes (Death, Other)
  Sender: FDA-Public Use
  Company Number: IL-NOVARTISPH-NVSC2022IL059288

PATIENT
  Age: 51 Year
  Sex: Female

DRUGS (2)
  1. CYCLOSPORINE [Suspect]
     Active Substance: CYCLOSPORINE
     Indication: Acute graft versus host disease
     Dosage: UNK
     Route: 065
  2. METHYLPREDNISOLONE [Suspect]
     Active Substance: METHYLPREDNISOLONE
     Indication: Acute graft versus host disease
     Dosage: UNK
     Route: 065

REACTIONS (8)
  - Sepsis [Fatal]
  - Acute graft versus host disease in liver [Unknown]
  - Acute graft versus host disease in skin [Unknown]
  - Graft versus host disease in gastrointestinal tract [Unknown]
  - Graft versus host disease [Unknown]
  - Condition aggravated [Unknown]
  - Steroid dependence [Unknown]
  - Product use in unapproved indication [Unknown]
